FAERS Safety Report 6811782-3 (Version None)
Quarter: 2010Q2

REPORT INFORMATION
  Report Type: 
  Country: None (occurrence: None)
  Receive Date: 20100628
  Receipt Date: 20100617
  Transmission Date: 20101027
  Serious: Yes (Hospitalization)
  Sender: FDA-Public Use
  Company Number: 7008148

PATIENT
  Age: 83 Year
  Sex: Female

DRUGS (7)
  1. LEVOTHYROXINE SODIUM [Suspect]
     Indication: HYPOTHYROIDISM
     Dosage: 1 DF (1 DF, 1 IN  1 D)  ORAL
     Route: 048
  2. PREVISCAN (FLUINDIONE) (20 MG, TABLET) (FLUINDIONE) [Suspect]
     Indication: ATRIAL FIBRILLATION
     Dosage: 0.25 DF (0.25 DF, IN THE EVENING) ORAL
     Route: 048
     Dates: end: 20091123
  3. INEXIUM (ESOMBPRAZOLE MAGNESIUM) (ESOMEPRAZOLE MAGNESIUM) [Concomitant]
  4. CYMBALTA (DULOXETINE HYDROCHLORIDE) (DULOXETINE HYDROCHLORIDE) [Concomitant]
  5. TANAKAN (GINKGO BILOBA EXTRACT)(GINKGO BILOBA EXTRACT) [Concomitant]
  6. VASTAREL (TRIMETAZIDINE HYDROCHLORIDE)(TRIMETAZIDINE HYDROCHLORIDE) [Concomitant]
  7. AMLOR (AMLODIPINE BESILATE) (AMLODIPINE BESILATE) [Concomitant]

REACTIONS (4)
  - DRUG INTERACTION [None]
  - HAEMOGLOBIN DECREASED [None]
  - MUSCLE HAEMORRHAGE [None]
  - PERITONEAL HAEMATOMA [None]
